FAERS Safety Report 8958936 (Version 2)
Quarter: 2013Q1

REPORT INFORMATION
  Report Type: Spontaneous
  Country: GB (occurrence: GB)
  Receive Date: 20121212
  Receipt Date: 20130207
  Transmission Date: 20140127
  Serious: Yes (Other)
  Sender: FDA-Public Use
  Company Number: GB-JNJFOC-20121201151

PATIENT
  Sex: Male
  Weight: 63.35 kg

DRUGS (10)
  1. STELARA [Suspect]
     Indication: PSORIASIS
     Route: 058
     Dates: start: 20120303
  2. AMOXICILLIN [Suspect]
     Indication: TOOTH INFECTION
     Route: 065
     Dates: start: 20121025, end: 20121026
  3. METHOTREXATE [Concomitant]
     Dosage: MANY YEARS
     Route: 065
  4. PARACETAMOL [Concomitant]
     Route: 048
  5. HYDROXYZINE [Concomitant]
     Dosage: 25-50 MGS
     Route: 048
     Dates: start: 20121122
  6. DERMOL 500 [Concomitant]
     Route: 061
     Dates: start: 20120807
  7. BETNOVATE RD [Concomitant]
     Route: 061
     Dates: start: 201112
  8. DOVOBET [Concomitant]
     Route: 061
     Dates: start: 201112
  9. WHITE SOFT PARAFFIN [Concomitant]
     Dosage: 50: 50 WITH PARAFFIN LIQUID
     Route: 061
     Dates: start: 201205
  10. PARAFFIN LIQUID [Concomitant]
     Dosage: 50:50 WITH WHITE SOFT PARAFFIN
     Route: 061
     Dates: start: 201205

REACTIONS (6)
  - Tooth infection [Recovered/Resolved]
  - Blister [Recovered/Resolved]
  - Dermatitis [Recovered/Resolved]
  - Rash [Recovered/Resolved]
  - Psoriasis [Recovered/Resolved]
  - Pruritus [Unknown]
